FAERS Safety Report 7012664-7 (Version None)
Quarter: 2010Q3

REPORT INFORMATION
  Report Type: 
  Country: None (occurrence: None)
  Receive Date: 20100924
  Receipt Date: 20100910
  Transmission Date: 20110219
  Serious: Yes (Other)
  Sender: FDA-Public Use
  Company Number: US-ROCHE-726971

PATIENT
  Sex: Male

DRUGS (2)
  1. RIBAVIRIN [Suspect]
     Indication: PRODUCT USED FOR UNKNOWN INDICATION
     Route: 064
  2. PLAN B [Concomitant]
     Dosage: FORM: PILL

REACTIONS (2)
  - ABNORMAL BEHAVIOUR [None]
  - ILL-DEFINED DISORDER [None]
